FAERS Safety Report 10137153 (Version 1)
Quarter: 2014Q2

REPORT INFORMATION
  Report Type: Spontaneous
  Country: DE (occurrence: None)
  Receive Date: 20140425
  Receipt Date: 20140425
  Transmission Date: 20141212
  Serious: Yes (Life-Threatening, Hospitalization)
  Sender: FDA-Public Use
  Company Number: 2014CP000054

PATIENT
  Age: 65 Year
  Sex: Male

DRUGS (1)
  1. PERFALGAN (PARACETAMOL) [Suspect]
     Indication: PROCEDURAL PAIN
     Route: 042

REACTIONS (4)
  - Loss of consciousness [None]
  - Dyspnoea [None]
  - Cold sweat [None]
  - Blood pressure decreased [None]
